FAERS Safety Report 8163791-2 (Version None)
Quarter: 2012Q1

REPORT INFORMATION
  Report Type: 
  Country: None (occurrence: None)
  Receive Date: 20120224
  Receipt Date: 20120217
  Transmission Date: 20120608
  Serious: Yes (Hospitalization, Other)
  Sender: FDA-Public Use
  Company Number: PHEH2008US03185

PATIENT
  Sex: Female

DRUGS (58)
  1. CARBOPLATIN [Concomitant]
  2. HERCEPTIN [Concomitant]
  3. FLONASE [Concomitant]
  4. DESOXYN [Concomitant]
     Dosage: UNK
  5. ADVAIR DISKUS 100/50 [Concomitant]
     Dosage: UNK
  6. OXYCODONE HCL [Concomitant]
     Dosage: UNK
  7. ATIVAN [Concomitant]
     Dosage: UNK
  8. DECADRON [Concomitant]
  9. NEUPOGEN [Concomitant]
  10. FENOFIBRATE [Concomitant]
  11. FERROUS GLUCONATE [Concomitant]
  12. SPIRIVA [Concomitant]
  13. WELLBUTRIN SR [Concomitant]
  14. DARVOCET-N 50 [Concomitant]
  15. NOLVADEX [Concomitant]
     Dosage: 20 MG, QD
  16. REMERON [Concomitant]
  17. KLOR-CON [Concomitant]
  18. CALCIUM WITH VITAMIN D [Concomitant]
  19. ARIMIDEX [Concomitant]
  20. ZYPREXA [Concomitant]
  21. CELEXA [Concomitant]
  22. RITALIN - SLOW RELEASE [Concomitant]
     Indication: SLEEP APNOEA SYNDROME
     Dosage: 20 MG, QD
     Dates: start: 20100118
  23. DEXEDRINE ^MEDEVA^ [Concomitant]
     Dosage: 20 MG/ QD
  24. COMPAZINE [Concomitant]
  25. AMITRIPTYLINE HCL [Concomitant]
     Dosage: 25 MG, QHS
  26. BENADRYL ^ACHE^ [Concomitant]
  27. MORPHINE [Concomitant]
     Dosage: UNK
  28. NEULASTA [Concomitant]
     Dosage: 6 MG, UNK
     Route: 058
  29. CHANTIX [Concomitant]
  30. ALBUTEROL [Concomitant]
  31. TAMOXIFEN CITRATE [Concomitant]
  32. TOBREX [Concomitant]
  33. DEXAMETHASONE [Concomitant]
  34. ARIMIDEX [Concomitant]
  35. ORAL CONTRACEPTIVE NOS [Concomitant]
  36. MORPHINE SULFATE [Concomitant]
  37. TAXOTERE [Concomitant]
  38. PAXIL [Concomitant]
  39. PROCRIT                            /00909301/ [Concomitant]
     Dosage: UNK
  40. METHYLPREDNISOLONE [Concomitant]
  41. OXYMORPHONE [Concomitant]
  42. OXYCONTIN [Concomitant]
  43. TAXOL [Concomitant]
  44. PAMELOR [Concomitant]
     Dosage: 25 MG, QHS
  45. DALMANE [Concomitant]
     Dosage: 30 MG, QHS
  46. SODIUM CHLORIDE [Concomitant]
  47. MULTIVITAMIN ^LAPPE^ [Concomitant]
  48. PRAVACHOL [Concomitant]
  49. ZANTAC [Concomitant]
  50. ZOMETA [Suspect]
     Indication: BONE LOSS
     Dosage: 4 MG, UNK
     Dates: start: 20041001, end: 20090501
  51. ACETAMINOPHEN [Concomitant]
  52. ARANESP [Concomitant]
  53. PRAVASTATIN [Concomitant]
  54. GABAPENTIN [Concomitant]
  55. SKELAXIN [Concomitant]
  56. TRASTUZUMAB [Concomitant]
  57. HYDROCODONE BITARTRATE [Concomitant]
     Indication: PAIN
     Dosage: 7.5 MG, Q6H
  58. CALCIUM [Concomitant]
     Dosage: 600 MG, BID

REACTIONS (100)
  - VIITH NERVE PARALYSIS [None]
  - HYPOAESTHESIA [None]
  - MESENTERIC VASCULAR INSUFFICIENCY [None]
  - ANXIETY [None]
  - RADIATION ASSOCIATED PAIN [None]
  - MEMORY IMPAIRMENT [None]
  - SLEEP APNOEA SYNDROME [None]
  - NEUTROPENIA [None]
  - GASTROOESOPHAGEAL REFLUX DISEASE [None]
  - HIATUS HERNIA [None]
  - PARAESTHESIA [None]
  - EMPHYSEMA [None]
  - DERMATITIS CONTACT [None]
  - DYSARTHRIA [None]
  - FRACTURE [None]
  - SALIVARY GLAND ENLARGEMENT [None]
  - SACROILIITIS [None]
  - INTERVERTEBRAL DISC PROTRUSION [None]
  - LUNG NEOPLASM [None]
  - SEDATION [None]
  - OSTEOARTHRITIS [None]
  - DECREASED APPETITE [None]
  - SWELLING FACE [None]
  - OESOPHAGITIS [None]
  - INTERVERTEBRAL DISC DEGENERATION [None]
  - RASH ERYTHEMATOUS [None]
  - IMPLANT SITE INFECTION [None]
  - HOT FLUSH [None]
  - RADICULAR PAIN [None]
  - BONE DISORDER [None]
  - MUSCLE SPASMS [None]
  - SCAR [None]
  - PHYSICAL DISABILITY [None]
  - PAIN [None]
  - HEPATIC ENZYME INCREASED [None]
  - HORDEOLUM [None]
  - HYPOPHAGIA [None]
  - ABDOMINAL PAIN UPPER [None]
  - VOMITING [None]
  - DEHYDRATION [None]
  - DIARRHOEA [None]
  - HUMAN PAPILLOMA VIRUS TEST POSITIVE [None]
  - HEMIPLEGIA [None]
  - RADICULOPATHY [None]
  - GAIT DISTURBANCE [None]
  - SPINAL COLUMN STENOSIS [None]
  - COLITIS [None]
  - DYSKINESIA [None]
  - MOOD SWINGS [None]
  - MALAISE [None]
  - INJURY [None]
  - EMOTIONAL DISTRESS [None]
  - WALKING AID USER [None]
  - FATIGUE [None]
  - PANCYTOPENIA [None]
  - GALLBLADDER DISORDER [None]
  - OSTEOMYELITIS [None]
  - DEPRESSION [None]
  - MYOPATHY [None]
  - PAIN IN EXTREMITY [None]
  - HALLUCINATION [None]
  - NEOPLASM MALIGNANT [None]
  - SUICIDAL IDEATION [None]
  - FACIAL PAIN [None]
  - DYSTONIA [None]
  - BONE LOSS [None]
  - INFECTION [None]
  - WEIGHT INCREASED [None]
  - DIZZINESS [None]
  - ANAEMIA [None]
  - OEDEMA [None]
  - MOOD DISORDER DUE TO A GENERAL MEDICAL CONDITION [None]
  - MENTAL STATUS CHANGES [None]
  - MUSCULOSKELETAL PAIN [None]
  - CERVIX CARCINOMA [None]
  - CERVICAL DYSPLASIA [None]
  - INTERVERTEBRAL DISC DISORDER [None]
  - NEUROPATHY PERIPHERAL [None]
  - TRISMUS [None]
  - PYREXIA [None]
  - DYSPNOEA [None]
  - MITRAL VALVE INCOMPETENCE [None]
  - BACK PAIN [None]
  - NEURITIS [None]
  - NEURALGIA [None]
  - RENAL PAIN [None]
  - SINUSITIS [None]
  - SOMNOLENCE [None]
  - RESPIRATORY DEPRESSION [None]
  - CLOSTRIDIUM DIFFICILE COLITIS [None]
  - DELUSION [None]
  - OSTEONECROSIS OF JAW [None]
  - PAIN IN JAW [None]
  - TOOTHACHE [None]
  - JAW FRACTURE [None]
  - ARTHRALGIA [None]
  - HIP FRACTURE [None]
  - HYPERCHOLESTEROLAEMIA [None]
  - SPINAL OSTEOARTHRITIS [None]
  - EXOSTOSIS [None]
